FAERS Safety Report 9893542 (Version 2)
Quarter: 2014Q1

REPORT INFORMATION
  Report Type: Spontaneous
  Country: BR (occurrence: BR)
  Receive Date: 20140213
  Receipt Date: 20140213
  Transmission Date: 20141002
  Serious: Yes (Other)
  Sender: FDA-Public Use
  Company Number: BR-SANOFI-AVENTIS-2013SA082951

PATIENT
  Age: 21 Year
  Sex: Female
  Weight: 75 kg

DRUGS (5)
  1. ENOXAPARIN SODIUM [Suspect]
     Indication: THROMBOSIS PROPHYLAXIS
     Dosage: DOSE AND DAILY DOSE: 1 SYRINGE
     Route: 051
     Dates: start: 20130626
  2. CEWIN [Suspect]
     Indication: VITAMIN SUPPLEMENTATION
     Route: 048
     Dates: start: 20130625
  3. CEWIN [Suspect]
     Indication: NASOPHARYNGITIS
     Route: 048
     Dates: start: 20130625
  4. MULTIVITAMIN AND MINERAL SUPPLEMENT [Concomitant]
     Indication: VITAMIN SUPPLEMENTATION
     Dosage: THERAPY START: ABOUT IN MAY-2013; 1 CAPSULE DAILY, DURING THE MEALS
     Route: 048
     Dates: start: 2013
  5. FOLIC ACID [Concomitant]
     Indication: VITAMIN SUPPLEMENTATION
     Dosage: THERAPY START: ABOUT IN MAY-2013
     Route: 048
     Dates: start: 2013

REACTIONS (4)
  - Hypertension [Recovered/Resolved]
  - Swelling [Recovered/Resolved]
  - Blood pressure abnormal [Recovered/Resolved]
  - Exposure during pregnancy [Unknown]
